FAERS Safety Report 21709800 (Version 1)
Quarter: 2022Q4

REPORT INFORMATION
  Report Type: Spontaneous
  Country: SI (occurrence: SI)
  Receive Date: 20221210
  Receipt Date: 20221210
  Transmission Date: 20230113
  Serious: Yes (Other)
  Sender: FDA-Public Use
  Company Number: None

PATIENT
  Age: 73 Year
  Sex: Female

DRUGS (7)
  1. AZOPT [Suspect]
     Active Substance: BRINZOLAMIDE
     Indication: Glaucoma
     Dosage: 1 DOSAGE FORM, BID (2X1)
     Route: 031
     Dates: start: 20220131, end: 20220214
  2. DIAZEPAM [Concomitant]
     Active Substance: DIAZEPAM
     Indication: Product used for unknown indication
     Dosage: 2 MG
     Route: 065
     Dates: start: 20211217
  3. FUROSEMIDE [Concomitant]
     Active Substance: FUROSEMIDE
     Indication: Product used for unknown indication
     Dosage: 40 MG
     Route: 065
     Dates: start: 20211217
  4. ACENOCOUMAROL [Concomitant]
     Active Substance: ACENOCOUMAROL
     Indication: Product used for unknown indication
     Dosage: 4 MG (ZDRAVILO Z ZACASNIM DOVOLJENJEM ZA VNOS/U)
     Route: 065
     Dates: start: 20211217
  5. LATANOPROST [Concomitant]
     Active Substance: LATANOPROST
     Indication: Product used for unknown indication
     Dosage: UNK (RAZTOPINA V ENOODMERNEM VSEBNIKU)
     Route: 065
     Dates: start: 20211217
  6. ALDACTONE [Concomitant]
     Active Substance: SPIRONOLACTONE
     Indication: Product used for unknown indication
     Dosage: 25 MG
     Route: 065
     Dates: start: 20211217
  7. TULIP [Concomitant]
     Indication: Product used for unknown indication
     Dosage: 4 MG
     Route: 065
     Dates: start: 20211217

REACTIONS (2)
  - Angina pectoris [Recovered/Resolved]
  - Pain [Recovered/Resolved]

NARRATIVE: CASE EVENT DATE: 20220206
